FAERS Safety Report 5708653-2 (Version None)
Quarter: 2008Q2

REPORT INFORMATION
  Report Type: 
  Country: None (occurrence: None)
  Receive Date: 20080414
  Receipt Date: 20080414
  Transmission Date: 20081010
  Serious: Yes (Other)
  Sender: FDA-Public Use
  Company Number: None

PATIENT
  Age: 61 Year
  Sex: Female
  Weight: 72.5755 kg

DRUGS (1)
  1. STRATTERA [Suspect]
     Indication: ATTENTION DEFICIT/HYPERACTIVITY DISORDER
     Dosage: 20 MG.  2 X DAILY, THEN 3 PO
     Route: 048
     Dates: start: 20040801, end: 20041015

REACTIONS (2)
  - DEPRESSION SUICIDAL [None]
  - REBOUND EFFECT [None]
